FAERS Safety Report 24332245 (Version 2)
Quarter: 2024Q3

REPORT INFORMATION
  Report Type: Spontaneous
  Country: PT (occurrence: PT)
  Receive Date: 20240918
  Receipt Date: 20240924
  Transmission Date: 20241017
  Serious: Yes (Other)
  Sender: BAYER
  Company Number: PT-BAYER-2024A120263

PATIENT
  Age: 76 Year
  Sex: Male

DRUGS (2)
  1. FINERENONE [Suspect]
     Active Substance: FINERENONE
     Indication: Diabetes mellitus
     Dosage: UNK
     Dates: start: 20240524, end: 20240809
  2. FINERENONE [Suspect]
     Active Substance: FINERENONE
     Indication: Chronic kidney disease

REACTIONS (3)
  - Blood potassium increased [Recovered/Resolved]
  - Blood creatinine increased [Recovered/Resolved]
  - Glomerular filtration rate decreased [Recovered/Resolved]

NARRATIVE: CASE EVENT DATE: 20240618
